FAERS Safety Report 20198850 (Version 1)
Quarter: 2021Q4

REPORT INFORMATION
  Report Type: Spontaneous
  Country: US (occurrence: None)
  Receive Date: 20211217
  Receipt Date: 20211217
  Transmission Date: 20220304
  Serious: Yes (Hospitalization)
  Sender: FDA-Public Use
  Company Number: None

PATIENT
  Age: 30 Year
  Sex: Female
  Weight: 59.94 kg

DRUGS (1)
  1. BAMLANIVIMAB\ETESEVIMAB [Suspect]
     Active Substance: BAMLANIVIMAB\ETESEVIMAB
     Indication: COVID-19
     Dosage: OTHER FREQUENCY : ONCE;?
     Route: 042
     Dates: start: 20211201, end: 20211201

REACTIONS (6)
  - Maternal exposure during pregnancy [None]
  - Blood pressure decreased [None]
  - Fibrin D dimer decreased [None]
  - Haemoglobin decreased [None]
  - Oxygen consumption increased [None]
  - Sepsis [None]

NARRATIVE: CASE EVENT DATE: 20211204
